FAERS Safety Report 12824168 (Version 1)
Quarter: 2016Q4

REPORT INFORMATION
  Report Type: Spontaneous
  Country: US (occurrence: US)
  Receive Date: 20161007
  Receipt Date: 20161007
  Transmission Date: 20170207
  Serious: Yes (Other)
  Sender: FDA-Public Use
  Company Number: US-PFIZER INC-2016463734

PATIENT
  Age: 10 Year
  Sex: Male

DRUGS (4)
  1. ALLEGRA [Concomitant]
     Active Substance: FEXOFENADINE HYDROCHLORIDE
     Indication: SEASONAL ALLERGY
  2. DAYTRANA [Concomitant]
     Active Substance: METHYLPHENIDATE
     Indication: ATTENTION DEFICIT/HYPERACTIVITY DISORDER
     Dosage: 10 MG, UNK
     Route: 062
  3. QUILLIVANT XR [Suspect]
     Active Substance: METHYLPHENIDATE HYDROCHLORIDE
     Indication: ATTENTION DEFICIT/HYPERACTIVITY DISORDER
  4. DAYTRANA [Concomitant]
     Active Substance: METHYLPHENIDATE
     Dosage: 20 MG, UNK

REACTIONS (5)
  - Abnormal behaviour [Unknown]
  - Tic [Unknown]
  - Regressive behaviour [Unknown]
  - Intentional self-injury [Unknown]
  - Drug effect incomplete [Unknown]
